FAERS Safety Report 6010766-5 (Version None)
Quarter: 2008Q4

REPORT INFORMATION
  Report Type: 
  Country: None (occurrence: None)
  Receive Date: 20081218
  Receipt Date: 20081209
  Transmission Date: 20090506
  Serious: Yes (Hospitalization)
  Sender: FDA-Public Use
  Company Number: FR-ASTRAZENECA-2008CG01819

PATIENT
  Age: 10447 Day
  Sex: Female

DRUGS (7)
  1. ENTOCORT EC [Suspect]
     Indication: CROHN'S DISEASE
     Route: 048
  2. NEXEN [Suspect]
     Indication: SCIATICA
     Route: 048
     Dates: start: 20080916, end: 20081001
  3. DI ANTALVIC [Suspect]
     Indication: SCIATICA
     Route: 048
     Dates: start: 20080916, end: 20081001
  4. TETRAZEPAM [Suspect]
     Indication: SCIATICA
     Dates: start: 20080916, end: 20081001
  5. ALDARA [Suspect]
     Indication: CONGENITAL CONDYLOMA
     Route: 003
  6. TRIPHASIL-21 [Suspect]
     Indication: CONTRACEPTION
     Route: 048
  7. PROFENID [Concomitant]
     Route: 042
     Dates: start: 20080903, end: 20080911

REACTIONS (1)
  - ERYTHEMA MULTIFORME [None]
